FAERS Safety Report 25643068 (Version 1)
Quarter: 2025Q3

REPORT INFORMATION
  Report Type: Spontaneous
  Country: US (occurrence: US)
  Receive Date: 20250805
  Receipt Date: 20250805
  Transmission Date: 20251020
  Serious: Yes (Other)
  Sender: SANDOZ
  Company Number: US-SANDOZ-SDZ2025US055647

PATIENT
  Sex: Female

DRUGS (1)
  1. COMBIPATCH [Suspect]
     Active Substance: ESTRADIOL\NORETHINDRONE ACETATE
     Indication: Product used for unknown indication
     Route: 062

REACTIONS (5)
  - Self-injurious ideation [Unknown]
  - Homicidal ideation [Unknown]
  - Unevaluable event [Unknown]
  - Off label use [Recovered/Resolved]
  - Prescribed overdose [Recovered/Resolved]
